FAERS Safety Report 19779130 (Version 1)
Quarter: 2021Q3

REPORT INFORMATION
  Report Type: Spontaneous
  Country: AU (occurrence: AU)
  Receive Date: 20210902
  Receipt Date: 20210902
  Transmission Date: 20211014
  Serious: Yes (Other)
  Sender: FDA-Public Use
  Company Number: AU-RECKITT BENCKISER HEALTHCARE INT LIMITED-RB-94028-2021

PATIENT
  Sex: Female

DRUGS (1)
  1. DETTOL (CHLOROXYLENOL) [Suspect]
     Active Substance: CHLOROXYLENOL
     Indication: PRODUCT USED FOR UNKNOWN INDICATION
     Dosage: UNK
     Route: 065

REACTIONS (2)
  - Pica [Not Recovered/Not Resolved]
  - Off label use [Not Recovered/Not Resolved]
